FAERS Safety Report 17925000 (Version 1)
Quarter: 2020Q2

REPORT INFORMATION
  Report Type: Spontaneous
  Country: US (occurrence: US)
  Receive Date: 20200622
  Receipt Date: 20200622
  Transmission Date: 20200714
  Serious: Yes (Hospitalization)
  Sender: FDA-Public Use
  Company Number: US-GW PHARMA-202006USGW02153

PATIENT

DRUGS (1)
  1. EPIDIOLEX [Suspect]
     Active Substance: CANNABIDIOL
     Indication: PRODUCT USED FOR UNKNOWN INDICATION
     Dosage: 15.20 MG/KG/DAY, 400 MILLIGRAM, BID
     Route: 048
     Dates: start: 20190408

REACTIONS (9)
  - Decreased appetite [Recovering/Resolving]
  - Weight decreased [Recovering/Resolving]
  - Stress [Recovering/Resolving]
  - Restlessness [Recovered/Resolved]
  - Suspected COVID-19 [Unknown]
  - Oedema peripheral [Recovered/Resolved]
  - Pyrexia [Recovered/Resolved]
  - Anxiety [Recovering/Resolving]
  - Balance disorder [Recovered/Resolved]

NARRATIVE: CASE EVENT DATE: 2020
